FAERS Safety Report 9370067 (Version 2)
Quarter: 2014Q2

REPORT INFORMATION
  Report Type: Report from Study
  Country: US (occurrence: US)
  Receive Date: 20130626
  Receipt Date: 20140624
  Transmission Date: 20141212
  Serious: Yes (Hospitalization, Other)
  Sender: FDA-Public Use
  Company Number: US-ALEXION-A201301439

PATIENT
  Age: 42 Year
  Sex: Female

DRUGS (3)
  1. SOLIRIS [Suspect]
     Indication: HAEMOLYTIC URAEMIC SYNDROME
     Dosage: UNK
     Route: 042
  2. SOLIRIS [Suspect]
     Dosage: UNK, SINGLE
     Route: 042
     Dates: start: 20130609, end: 20130609
  3. SOLIRIS [Suspect]
     Dosage: UNK, SINGLE
     Route: 042
     Dates: start: 20130611, end: 20130611

REACTIONS (4)
  - Renal transplant [Recovered/Resolved]
  - Complications of transplanted kidney [Unknown]
  - Biopsy kidney abnormal [Unknown]
  - Antibody test positive [Unknown]
